FAERS Safety Report 15440037 (Version 1)
Quarter: 2018Q3

REPORT INFORMATION
  Report Type: Spontaneous
  Country: US (occurrence: US)
  Receive Date: 20180925
  Receipt Date: 20180925
  Transmission Date: 20181010
  Serious: Yes (Disabling, Other)
  Sender: FDA-Public Use
  Company Number: None

PATIENT
  Age: 61 Year
  Sex: Female
  Weight: 85.5 kg

DRUGS (1)
  1. PROLIA [Suspect]
     Active Substance: DENOSUMAB
     Indication: OSTEOPOROSIS
     Dosage: ?          OTHER FREQUENCY:1 TIME EVERY 6 MON;?
     Route: 058
     Dates: start: 20180809

REACTIONS (3)
  - Back pain [None]
  - Joint noise [None]
  - Arthralgia [None]

NARRATIVE: CASE EVENT DATE: 20180826
